FAERS Safety Report 15049569 (Version 2)
Quarter: 2018Q2

REPORT INFORMATION
  Report Type: Spontaneous
  Country: US (occurrence: US)
  Receive Date: 20180622
  Receipt Date: 20180629
  Transmission Date: 20180711
  Serious: Yes (Other)
  Sender: FDA-Public Use
  Company Number: US-DRREDDYS-USA/USA/18/0100612

PATIENT
  Age: 78 Year
  Sex: Male

DRUGS (2)
  1. RANITIDINE TABLETS 75 MG [Suspect]
     Active Substance: RANITIDINE
     Indication: PRODUCT USED FOR UNKNOWN INDICATION
     Route: 065
  2. LEFLUNOMIDE. [Concomitant]
     Active Substance: LEFLUNOMIDE
     Indication: PRODUCT USED FOR UNKNOWN INDICATION
     Route: 065

REACTIONS (4)
  - Oesophagitis [Unknown]
  - Duodenal ulcer [Unknown]
  - Gastric ulcer [Unknown]
  - Colitis microscopic [Recovering/Resolving]
